FAERS Safety Report 4665475-1 (Version None)
Quarter: 2005Q2

REPORT INFORMATION
  Report Type: 
  Country: None (occurrence: None)
  Receive Date: 20050519
  Receipt Date: 20040521
  Transmission Date: 20051028
  Serious: Yes (Hospitalization)
  Sender: FDA-Public Use
  Company Number: US-BRISTOL-MYERS SQUIBB COMPANY-12593265

PATIENT
  Age: 60 Year
  Sex: Female
  Weight: 76 kg

DRUGS (3)
  1. CYCLOPHOSPHAMIDE [Suspect]
     Indication: BREAST CANCER
     Dosage: THERAPY DATES: 03 TO 30-MAR-2004
     Dates: start: 20040330, end: 20040330
  2. NEULASTA [Suspect]
     Indication: CHEMOTHERAPY
     Dosage: THERAPY DATES: 04 TO 31-MAR-2004
     Route: 058
     Dates: start: 20040331, end: 20040331
  3. DOXORUBICIN HCL [Concomitant]
     Dates: start: 20040303, end: 20040330

REACTIONS (3)
  - ASTHENIA [None]
  - DYSPNOEA [None]
  - PNEUMONITIS [None]
